FAERS Safety Report 12556724 (Version 1)
Quarter: 2016Q3

REPORT INFORMATION
  Report Type: Spontaneous
  Country: US (occurrence: US)
  Receive Date: 20160714
  Receipt Date: 20160714
  Transmission Date: 20161109
  Serious: No
  Sender: FDA-Public Use
  Company Number: US-ALARA PHARMACEUTICAL CORPORATION-1055050

PATIENT
  Age: 66 Year
  Sex: Female
  Weight: 62.27 kg

DRUGS (1)
  1. LEVO-T [Suspect]
     Active Substance: LEVOTHYROXINE SODIUM
     Indication: HYPOTHYROIDISM
     Route: 048

REACTIONS (5)
  - Restlessness [Unknown]
  - Asthenia [Unknown]
  - Alopecia [Unknown]
  - Headache [Unknown]
  - Drug dose omission [Unknown]
